FAERS Safety Report 12443243 (Version 1)
Quarter: 2016Q2

REPORT INFORMATION
  Report Type: Spontaneous
  Country: IT (occurrence: IT)
  Receive Date: 20160607
  Receipt Date: 20160607
  Transmission Date: 20160815
  Serious: Yes (Hospitalization)
  Sender: FDA-Public Use
  Company Number: IT-PFIZER INC-2016284645

PATIENT
  Age: 77 Year
  Sex: Male

DRUGS (7)
  1. ASCRIPTIN [Concomitant]
     Active Substance: ASPIRIN
     Dosage: UNK
  2. MADOPAR [Concomitant]
     Active Substance: BENSERAZIDE HYDROCHLORIDE\LEVODOPA
     Dosage: UNK
  3. KANRENOL [Concomitant]
     Active Substance: CANRENOATE POTASSIUM
     Dosage: UNK
  4. CORDARONE [Suspect]
     Active Substance: AMIODARONE HYDROCHLORIDE
     Indication: ARRHYTHMIA
     Dosage: UNK, WEEKLY
     Route: 048
     Dates: start: 20150201, end: 20151205
  5. CONGESCOR [Concomitant]
     Active Substance: BISOPROLOL
     Dosage: UNK
  6. LASIX [Concomitant]
     Active Substance: FUROSEMIDE
     Dosage: UNK
  7. PANTOPRAZOLE [Concomitant]
     Active Substance: PANTOPRAZOLE SODIUM
     Dosage: UNK

REACTIONS (7)
  - Hyperammonaemia [Unknown]
  - Oedema [Unknown]
  - Jaundice [Unknown]
  - Sopor [Unknown]
  - Ecchymosis [Unknown]
  - Somnolence [Unknown]
  - Hepatomegaly [Unknown]

NARRATIVE: CASE EVENT DATE: 20151205
